FAERS Safety Report 9511419 (Version 1)
Quarter: 2013Q3

REPORT INFORMATION
  Report Type: Spontaneous
  Country: DE (occurrence: DE)
  Receive Date: 20130910
  Receipt Date: 20130910
  Transmission Date: 20140515
  Serious: Yes (Disabling)
  Sender: FDA-Public Use
  Company Number: DE-BRISTOL-MYERS SQUIBB COMPANY-19362771

PATIENT
  Age: 53 Year
  Sex: Male

DRUGS (9)
  1. ARIPIPRAZOLE [Suspect]
  2. LAMOTRIGINE [Suspect]
  3. LITHIUM [Suspect]
  4. VENLAFAXINE HCL [Suspect]
  5. ATORVASTATIN [Concomitant]
  6. HUMALOG [Concomitant]
  7. INDAPAMIDE [Concomitant]
  8. INSULIN GLARGINE [Concomitant]
  9. PERINDOPRIL [Concomitant]

REACTIONS (5)
  - Balance disorder [Not Recovered/Not Resolved]
  - Fall [Unknown]
  - Dysphagia [Not Recovered/Not Resolved]
  - Hyperhidrosis [Not Recovered/Not Resolved]
  - Tremor [Unknown]
